FAERS Safety Report 21335407 (Version 2)
Quarter: 2022Q3

REPORT INFORMATION
  Report Type: Spontaneous
  Country: CA (occurrence: CA)
  Receive Date: 20220915
  Receipt Date: 20220928
  Transmission Date: 20221027
  Serious: Yes (Hospitalization)
  Sender: FDA-Public Use
  Company Number: CA-TEVA-2022-CA-2071804

PATIENT
  Age: 63 Year
  Sex: Male

DRUGS (7)
  1. CEFTRIAXONE [Suspect]
     Active Substance: CEFTRIAXONE
     Indication: COVID-19
     Route: 065
  2. METHYLPREDNISOLONE [Suspect]
     Active Substance: METHYLPREDNISOLONE
     Indication: COVID-19
     Dosage: 240 MILLIGRAM DAILY;
     Route: 042
  3. METHYLPREDNISOLONE [Suspect]
     Active Substance: METHYLPREDNISOLONE
     Dosage: 80 MILLIGRAM DAILY;
     Route: 042
  4. PREDNISONE [Suspect]
     Active Substance: PREDNISONE
     Indication: COVID-19
     Dosage: ORAL PREDNISONE (30-50 MG DAILY)
     Route: 048
  5. PREDNISONE [Suspect]
     Active Substance: PREDNISONE
     Dosage: SUBSEQUENTLY TAPERED
     Route: 048
  6. FLUCONAZOLE [Suspect]
     Active Substance: FLUCONAZOLE
     Indication: Fungal oesophagitis
     Dosage: 600 MILLIGRAM DAILY;
     Route: 065
  7. TOCILIZUMAB [Suspect]
     Active Substance: TOCILIZUMAB
     Indication: COVID-19
     Route: 065

REACTIONS (14)
  - Staphylococcal infection [Unknown]
  - Empyema [Unknown]
  - Pleural effusion [Unknown]
  - Pseudomonal bacteraemia [Unknown]
  - Pseudomonas infection [Unknown]
  - Urinary tract infection [Unknown]
  - Fungal oesophagitis [Unknown]
  - Mycotic endophthalmitis [Recovering/Resolving]
  - Candida infection [Recovered/Resolved]
  - Deep vein thrombosis [Unknown]
  - Retinitis [Recovering/Resolving]
  - Vitritis [Recovering/Resolving]
  - Drug ineffective [Unknown]
  - Off label use [Unknown]
